FAERS Safety Report 17483676 (Version 2)
Quarter: 2020Q1

REPORT INFORMATION
  Report Type: Spontaneous
  Country: US (occurrence: US)
  Receive Date: 20200302
  Receipt Date: 20200304
  Transmission Date: 20200409
  Serious: Yes (Other)
  Sender: FDA-Public Use
  Company Number: US-CELGENEUS-USA-20200209938

PATIENT
  Sex: Male
  Weight: 81.72 kg

DRUGS (2)
  1. REVLIMID [Suspect]
     Active Substance: LENALIDOMIDE
     Indication: PLASMA CELL MYELOMA
     Dosage: 10 MILLIGRAM
     Route: 048
     Dates: start: 20200106
  2. REVLIMID [Suspect]
     Active Substance: LENALIDOMIDE
     Indication: 5Q MINUS SYNDROME
     Dosage: 5 MILLIGRAM
     Route: 048
     Dates: start: 202002

REACTIONS (9)
  - Neutrophil count decreased [Not Recovered/Not Resolved]
  - Omphalitis [Not Recovered/Not Resolved]
  - Vomiting [Not Recovered/Not Resolved]
  - Platelet count decreased [Not Recovered/Not Resolved]
  - Haemoglobin decreased [Not Recovered/Not Resolved]
  - Weight decreased [Not Recovered/Not Resolved]
  - Fatigue [Not Recovered/Not Resolved]
  - White blood cell count decreased [Not Recovered/Not Resolved]
  - Nausea [Not Recovered/Not Resolved]

NARRATIVE: CASE EVENT DATE: 2020
